FAERS Safety Report 7135908-X (Version None)
Quarter: 2010Q4

REPORT INFORMATION
  Report Type: 
  Country: None (occurrence: None)
  Receive Date: 20101204
  Receipt Date: 20101113
  Transmission Date: 20110411
  Serious: Yes (Other)
  Sender: FDA-Public Use
  Company Number: RU-BAYER-201035285GPV

PATIENT

DRUGS (1)
  1. NEXAVAR [Suspect]
     Route: 048
     Dates: start: 20100717

REACTIONS (8)
  - ALOPECIA [None]
  - ANGINA PECTORIS [None]
  - ASTHENIA [None]
  - BODY TEMPERATURE INCREASED [None]
  - DIARRHOEA [None]
  - DIZZINESS [None]
  - PALMAR-PLANTAR ERYTHRODYSAESTHESIA SYNDROME [None]
  - SKIN DISORDER [None]
